FAERS Safety Report 8897289 (Version 1)
Quarter: 2012Q4

REPORT INFORMATION
  Report Type: 
  Country: US (occurrence: US)
  Receive Date: 20121108
  Receipt Date: 20121108
  Transmission Date: 20130627
  Serious: Yes (Other)
  Sender: FDA-Public Use
  Company Number: US-AMGEN-USASP2012029305

PATIENT
  Sex: Male

DRUGS (8)
  1. ENBREL [Suspect]
     Indication: PRODUCT USED FOR UNKNOWN INDICATION
     Dosage: 50 mg, qwk
     Route: 058
  2. METHOTREXATE [Concomitant]
     Dosage: 2.5 mg, UNK
  3. VITAMIN B COMPLEX [Concomitant]
     Dosage: UNK
  4. FISH OIL [Concomitant]
     Dosage: UNK
  5. VITAMIN D [Concomitant]
     Dosage: 1000 IU, UNK
  6. KEPPRA [Concomitant]
     Dosage: 250 mg, UNK
  7. GLUCOSAMINE [Concomitant]
     Dosage: UNK
  8. MULTIVITAMIN [Suspect]

REACTIONS (1)
  - Convulsion [Unknown]
